FAERS Safety Report 17757009 (Version 1)
Quarter: 2020Q2

REPORT INFORMATION
  Report Type: Spontaneous
  Country: US (occurrence: US)
  Receive Date: 20200507
  Receipt Date: 20200507
  Transmission Date: 20200714
  Serious: Yes (Hospitalization, Other)
  Sender: FDA-Public Use
  Company Number: US-009507513-2005USA000949

PATIENT
  Age: 59 Year
  Sex: Female
  Weight: 98 kg

DRUGS (9)
  1. LENVATINIB MESYLATE [Suspect]
     Active Substance: LENVATINIB MESYLATE
     Dosage: 14 MG, 1 D
     Route: 048
     Dates: start: 20200420
  2. FENTANYL. [Concomitant]
     Active Substance: FENTANYL
     Dosage: FORMULATION: PATCH
  3. COLACE [Concomitant]
     Active Substance: DOCUSATE SODIUM
  4. LENVATINIB MESYLATE [Suspect]
     Active Substance: LENVATINIB MESYLATE
     Indication: UTERINE CANCER
     Dosage: 20 MG, 1 D
     Route: 048
     Dates: start: 20200117, end: 202003
  5. ENALAPRIL [Concomitant]
     Active Substance: ENALAPRIL
  6. KEYTRUDA [Suspect]
     Active Substance: PEMBROLIZUMAB
     Indication: UTERINE CANCER
     Dosage: UNKNOWN DOSE, 3WK
     Route: 042
     Dates: start: 202001
  7. HYDROMORPHONE [Concomitant]
     Active Substance: HYDROMORPHONE
  8. METFORMIN [Concomitant]
     Active Substance: METFORMIN HYDROCHLORIDE
  9. BENAZEPRIL HYDROCHLORIDE. [Concomitant]
     Active Substance: BENAZEPRIL HYDROCHLORIDE

REACTIONS (23)
  - Lethargy [Recovered/Resolved]
  - Hot flush [Not Recovered/Not Resolved]
  - Weight decreased [Unknown]
  - Vomiting [Not Recovered/Not Resolved]
  - Cholecystitis [Recovered/Resolved]
  - Renal injury [Unknown]
  - Bone pain [Unknown]
  - Asthenia [Unknown]
  - Vomiting [Recovered/Resolved]
  - Constipation [Recovered/Resolved]
  - Abdominal pain upper [Not Recovered/Not Resolved]
  - Hypomagnesaemia [Not Recovered/Not Resolved]
  - Hypertension [Unknown]
  - Fatigue [Unknown]
  - Dysphonia [Unknown]
  - Nausea [Not Recovered/Not Resolved]
  - Dizziness [Unknown]
  - Gastrointestinal infection [Recovered/Resolved]
  - Taste disorder [Not Recovered/Not Resolved]
  - Heart injury [Unknown]
  - Pain [Unknown]
  - Dehydration [Recovered/Resolved]
  - Anxiety [Not Recovered/Not Resolved]

NARRATIVE: CASE EVENT DATE: 202001
